FAERS Safety Report 16986108 (Version 1)
Quarter: 2019Q4

REPORT INFORMATION
  Report Type: Spontaneous
  Country: US (occurrence: US)
  Receive Date: 20190918
  Receipt Date: 20190918
  Transmission Date: 20200122
  Serious: Yes (Other)
  Sender: FDA-Public Use
  Company Number: None

PATIENT
  Sex: Female

DRUGS (1)
  1. COPAXONE [Suspect]
     Active Substance: GLATIRAMER ACETATE
     Indication: MULTIPLE SCLEROSIS
     Route: 048
     Dates: start: 20080814

REACTIONS (9)
  - Chest pain [None]
  - Anxiety [None]
  - Coagulation time prolonged [None]
  - Peripheral swelling [None]
  - Malaise [None]
  - Gait disturbance [None]
  - Abdominal distension [None]
  - Eye infection [None]
  - Oedema peripheral [None]
